FAERS Safety Report 9275371 (Version 1)
Quarter: 2013Q2

REPORT INFORMATION
  Report Type: Spontaneous
  Country: US (occurrence: US)
  Receive Date: 20130507
  Receipt Date: 20130507
  Transmission Date: 20140414
  Serious: No
  Sender: FDA-Public Use
  Company Number: US-PFIZER INC-2013140691

PATIENT
  Age: 49 Year
  Sex: Female
  Weight: 81.63 kg

DRUGS (5)
  1. CHANTIX [Suspect]
     Indication: SMOKING CESSATION THERAPY
     Dosage: 0.5 MG, 1X/DAY
     Dates: start: 201304, end: 2013
  2. CHANTIX [Suspect]
     Dosage: 0.5 MG, 2X/DAY
     Dates: start: 2013, end: 2013
  3. CHANTIX [Suspect]
     Dosage: 1 MG, 2X/DAY
     Dates: start: 2013, end: 20130502
  4. HYDROCODONE [Concomitant]
     Indication: BACK PAIN
     Dosage: 2 DF, 1X/DAY (10/325MG)
  5. SOMA [Concomitant]
     Indication: BACK PAIN
     Dosage: UNK

REACTIONS (4)
  - Swelling [Unknown]
  - Dizziness [Unknown]
  - Abdominal pain upper [Unknown]
  - Vomiting [Unknown]
